FAERS Safety Report 5253310-2 (Version None)
Quarter: 2007Q1

REPORT INFORMATION
  Report Type: 
  Country: None (occurrence: None)
  Receive Date: 20061201
  Receipt Date: 20060829
  Transmission Date: 20070707
  Serious: No
  Sender: FDA-Public Use
  Company Number: 2006PV020351

PATIENT
  Age: 53 Year
  Sex: Female
  Weight: 94.8018 kg

DRUGS (6)
  1. BYETTA [Suspect]
     Indication: DIABETES MELLITUS NON-INSULIN-DEPENDENT
     Dosage: 5 MCG;BID;SC
     Route: 058
     Dates: start: 20060825
  2. ACTOS [Concomitant]
  3. INSULIN 75/25 [Concomitant]
  4. COZAAR [Concomitant]
  5. LIPITOR [Concomitant]
  6. CRESTOR [Concomitant]

REACTIONS (8)
  - BLOOD GLUCOSE DECREASED [None]
  - BLOOD GLUCOSE FLUCTUATION [None]
  - DIZZINESS [None]
  - FEELING JITTERY [None]
  - HEADACHE [None]
  - NAUSEA [None]
  - PRURITUS [None]
  - VOMITING [None]
